FAERS Safety Report 9231766 (Version 1)
Quarter: 2013Q2

REPORT INFORMATION
  Report Type: Spontaneous
  Country: US (occurrence: US)
  Receive Date: 20130415
  Receipt Date: 20130415
  Transmission Date: 20140414
  Serious: Yes (Other)
  Sender: FDA-Public Use
  Company Number: US-PFIZER INC-2012226841

PATIENT
  Age: 54 Year
  Sex: Female

DRUGS (2)
  1. PREMPRO [Suspect]
     Indication: HAIR GROWTH ABNORMAL
     Dosage: UNK
     Route: 048
  2. PREMPRO [Suspect]
     Indication: HORMONE REPLACEMENT THERAPY

REACTIONS (1)
  - Breast cancer female [Unknown]
